FAERS Safety Report 5416317-8 (Version None)
Quarter: 2007Q3

REPORT INFORMATION
  Report Type: 
  Country: None (occurrence: None)
  Receive Date: 20070718
  Receipt Date: 20060623
  Transmission Date: 20080115
  Serious: Yes (Death, Other)
  Sender: FDA-Public Use
  Company Number: 2006036660

PATIENT
  Age: 70 Year
  Sex: Male
  Weight: 104.7809 kg

DRUGS (1)
  1. CELEBREX [Suspect]
     Indication: BACK PAIN
     Dosage: 200 MG (200 MG, 1 IN 1 D)
     Dates: start: 20011110, end: 20031212

REACTIONS (1)
  - CEREBROVASCULAR ACCIDENT [None]
